FAERS Safety Report 7729219-9 (Version None)
Quarter: 2011Q3

REPORT INFORMATION
  Report Type: 
  Country: None (occurrence: None)
  Receive Date: 20110906
  Receipt Date: 20110901
  Transmission Date: 20111222
  Serious: No
  Sender: FDA-Public Use
  Company Number: US-PFIZER INC-2011185125

PATIENT
  Sex: Female
  Weight: 81.63 kg

DRUGS (1)
  1. CHANTIX [Suspect]
     Indication: SMOKING CESSATION THERAPY
     Dosage: 0.5 MG, DAILY
     Route: 048
     Dates: start: 20110401, end: 20110401

REACTIONS (5)
  - VOMITING [None]
  - NAUSEA [None]
  - GASTROINTESTINAL DISORDER [None]
  - ABNORMAL BEHAVIOUR [None]
  - DIARRHOEA [None]
